FAERS Safety Report 11250637 (Version 1)
Quarter: 2015Q3

REPORT INFORMATION
  Report Type: Spontaneous
  Country: US (occurrence: US)
  Receive Date: 20150708
  Receipt Date: 20150708
  Transmission Date: 20151125
  Serious: Yes (Other)
  Sender: FDA-Public Use
  Company Number: US-ELI_LILLY_AND_COMPANY-US201101005017

PATIENT
  Age: 62 Year
  Sex: Male
  Weight: 68.7 kg

DRUGS (5)
  1. VITAMIN B 12 LICHTENSTEIN [Concomitant]
     Dosage: 1000 U, UNKNOWN
     Route: 030
     Dates: start: 20101028, end: 20101209
  2. WARFARIN [Concomitant]
     Active Substance: WARFARIN
     Dosage: 1 MG, DAILY (1/D)
     Route: 048
  3. ALIMTA [Suspect]
     Active Substance: PEMETREXED DISODIUM
     Dosage: 1 D/F, OTHER
     Dates: start: 20101118
  4. ALIMTA [Suspect]
     Active Substance: PEMETREXED DISODIUM
     Dosage: 1 D/F, OTHER
  5. FOLIC ACID. [Concomitant]
     Active Substance: FOLIC ACID
     Dosage: 1 MG, UNKNOWN
     Route: 048
     Dates: start: 20101029

REACTIONS (2)
  - Anaemia [Recovered/Resolved]
  - Thrombocytopenia [Recovered/Resolved]

NARRATIVE: CASE EVENT DATE: 20101129
